FAERS Safety Report 8770435 (Version 1)
Quarter: 2012Q4

REPORT INFORMATION
  Report Type: 
  Country: US (occurrence: US)
  Receive Date: 20120906
  Receipt Date: 20120906
  Transmission Date: 20130627
  Serious: Yes (Other)
  Sender: FDA-Public Use
  Company Number: US-JNJFOC-20120900380

PATIENT
  Age: 60 Year
  Sex: Female

DRUGS (3)
  1. NUCYNTA [Suspect]
     Indication: ANALGESIC THERAPY
     Dosage: 4 in one day
     Route: 048
     Dates: start: 201208, end: 201208
  2. CYMBALTA [Concomitant]
     Indication: PRODUCT USED FOR UNKNOWN INDICATION
     Route: 048
  3. AN UNKNOWN MEDICATION [Concomitant]
     Indication: PRODUCT USED FOR UNKNOWN INDICATION
     Route: 065

REACTIONS (2)
  - Respiratory disorder [Recovered/Resolved]
  - Dizziness [Recovered/Resolved]
